FAERS Safety Report 13261109 (Version 4)
Quarter: 2017Q1

REPORT INFORMATION
  Report Type: Spontaneous
  Country: US (occurrence: US)
  Receive Date: 20170222
  Receipt Date: 20170307
  Transmission Date: 20170428
  Serious: Yes (Hospitalization, Other)
  Sender: FDA-Public Use
  Company Number: US-BAXALTA-2017BLT001105

PATIENT
  Age: 3 Year
  Sex: Male
  Weight: 14.8 kg

DRUGS (5)
  1. ADVATE [Suspect]
     Active Substance: ANTIHEMOPHILIC FACTOR, HUMAN RECOMBINANT
     Dosage: 50 U/KG, ONCE
     Route: 065
     Dates: start: 20160711
  2. ADVATE [Suspect]
     Active Substance: ANTIHEMOPHILIC FACTOR, HUMAN RECOMBINANT
     Dosage: 56 U/KG, 1X A WEEK
     Route: 065
     Dates: start: 20160802
  3. ADVATE [Suspect]
     Active Substance: ANTIHEMOPHILIC FACTOR, HUMAN RECOMBINANT
     Dosage: 200 U/KG 1X A DAY
     Route: 065
     Dates: start: 20160921
  4. ADVATE [Suspect]
     Active Substance: ANTIHEMOPHILIC FACTOR, HUMAN RECOMBINANT
     Indication: HAEMOPHILIA
     Dosage: X 2
     Route: 065
     Dates: start: 20160630
  5. ADVATE [Suspect]
     Active Substance: ANTIHEMOPHILIC FACTOR, HUMAN RECOMBINANT
     Dosage: 56 U/KG, 2X A WEEK
     Route: 065
     Dates: start: 20160829

REACTIONS (2)
  - Haemarthrosis [Unknown]
  - Inhibiting antibodies [Recovered/Resolved]

NARRATIVE: CASE EVENT DATE: 20160630
